FAERS Safety Report 5274174-7 (Version None)
Quarter: 2007Q1

REPORT INFORMATION
  Report Type: 
  Country: None (occurrence: None)
  Receive Date: 20070323
  Receipt Date: 20070314
  Transmission Date: 20070707
  Serious: Yes (Hospitalization)
  Sender: FDA-Public Use
  Company Number: FR-SANOFI-SYNTHELABO-A02200700774

PATIENT
  Age: 76 Year
  Sex: Male

DRUGS (3)
  1. LIPANTHYL [Concomitant]
     Route: 048
     Dates: start: 20030101
  2. TARDYFERON [Suspect]
     Indication: IRON DEFICIENCY
     Route: 048
     Dates: start: 20061006, end: 20061212
  3. ALFUZOSINE WINTHROP [Suspect]
     Indication: POLLAKIURIA
     Route: 048
     Dates: start: 20061002, end: 20070102

REACTIONS (1)
  - COLITIS COLLAGENOUS [None]
